FAERS Safety Report 5568605-2 (Version None)
Quarter: 2007Q4

REPORT INFORMATION
  Report Type: 
  Country: None (occurrence: None)
  Receive Date: 20071220
  Receipt Date: 20071210
  Transmission Date: 20080405
  Serious: Yes (Other)
  Sender: FDA-Public Use
  Company Number: US-ROCHE-536121

PATIENT
  Age: 45 Year
  Sex: Female

DRUGS (2)
  1. PEGASYS [Suspect]
     Indication: HEPATITIS C
     Route: 065
     Dates: end: 20071016
  2. COPEGUS [Suspect]
     Indication: HEPATITIS C
     Route: 065
     Dates: end: 20071016

REACTIONS (2)
  - CERVIX CARCINOMA [None]
  - PLATELET COUNT DECREASED [None]
